FAERS Safety Report 7790725-2 (Version None)
Quarter: 2011Q3

REPORT INFORMATION
  Report Type: 
  Country: None (occurrence: None)
  Receive Date: 20110930
  Receipt Date: 20090928
  Transmission Date: 20111222
  Serious: Yes (Hospitalization)
  Sender: FDA-Public Use
  Company Number: PHHY2009TW60836

PATIENT
  Sex: Male

DRUGS (2)
  1. GLEEVEC [Suspect]
     Indication: GASTROINTESTINAL STROMAL TUMOUR
     Dosage: 400 MG, UNK
     Route: 048
     Dates: start: 20070822
  2. CHEMOTHERAPEUTICS [Concomitant]
     Dosage: UNK UKN, UNK

REACTIONS (9)
  - VOMITING [None]
  - DIARRHOEA [None]
  - GASTRITIS [None]
  - BODY TEMPERATURE INCREASED [None]
  - MUSCULAR WEAKNESS [None]
  - HYPOAESTHESIA [None]
  - HYPOKALAEMIA [None]
  - FEELING HOT [None]
  - CHILLS [None]
